FAERS Safety Report 7477906-2 (Version None)
Quarter: 2011Q2

REPORT INFORMATION
  Report Type: 
  Country: None (occurrence: None)
  Receive Date: 20110511
  Receipt Date: 20110511
  Transmission Date: 20111010
  Serious: Yes (Life-Threatening, Hospitalization)
  Sender: FDA-Public Use
  Company Number: None

PATIENT
  Sex: Female
  Weight: 57.7 kg

DRUGS (2)
  1. AZASITE [Suspect]
     Indication: BLEPHARITIS
     Dosage: AZASITE, 1 GT BID OU
     Dates: start: 20110303
  2. AZASITE [Suspect]
     Indication: BLEPHARITIS
     Dosage: AZASITE, 1 GT BID OU
     Dates: start: 20110304

REACTIONS (1)
  - MYASTHENIA GRAVIS [None]
